FAERS Safety Report 24565705 (Version 1)
Quarter: 2024Q4

REPORT INFORMATION
  Report Type: Spontaneous
  Country: CN (occurrence: CN)
  Receive Date: 20241030
  Receipt Date: 20241030
  Transmission Date: 20250115
  Serious: Yes (Other)
  Sender: GLAND PHARMA LTD
  Company Number: CN-GLANDPHARMA-CN-2024GLNLIT00912

PATIENT
  Age: 70 Year
  Sex: Male

DRUGS (2)
  1. PACLITAXEL [Suspect]
     Active Substance: PACLITAXEL
     Indication: Skin angiosarcoma
     Dosage: TWO CYCLES
     Route: 065
  2. BEVACIZUMAB [Suspect]
     Active Substance: BEVACIZUMAB
     Indication: Skin angiosarcoma
     Dosage: TWO CYCLES
     Route: 065

REACTIONS (3)
  - Biliary obstruction [Unknown]
  - Transaminases increased [Unknown]
  - Product use in unapproved indication [Unknown]
